FAERS Safety Report 19914071 (Version 9)
Quarter: 2022Q2

REPORT INFORMATION
  Report Type: Report from Study
  Country: US (occurrence: US)
  Receive Date: 20211004
  Receipt Date: 20220608
  Transmission Date: 20220721
  Serious: No
  Sender: FDA-Public Use
  Company Number: NVSC2021US223237

PATIENT
  Sex: Female

DRUGS (1)
  1. ENTRESTO [Suspect]
     Active Substance: SACUBITRIL\VALSARTAN
     Indication: Product used for unknown indication
     Dosage: UNK UNK, BID, (97/103 MG)
     Route: 048
     Dates: start: 202109

REACTIONS (9)
  - Throat clearing [Unknown]
  - Dyspepsia [Unknown]
  - Weight decreased [Unknown]
  - Blood potassium decreased [Unknown]
  - COVID-19 [Recovering/Resolving]
  - Nasopharyngitis [Recovering/Resolving]
  - Nasal congestion [Recovering/Resolving]
  - Dyspnoea exertional [Unknown]
  - Inappropriate schedule of product administration [Unknown]
